FAERS Safety Report 10665588 (Version 1)
Quarter: 2014Q4

REPORT INFORMATION
  Report Type: Spontaneous
  Country: US (occurrence: US)
  Receive Date: 20141219
  Receipt Date: 20141219
  Transmission Date: 20150529
  Serious: Yes (Other)
  Sender: FDA-Public Use
  Company Number: CHPA2014US016518

PATIENT

DRUGS (6)
  1. TRANSDERM SCOP [Suspect]
     Active Substance: SCOPOLAMINE
     Indication: OFF LABEL USE
  2. MECLIZINE [Suspect]
     Active Substance: MECLIZINE\MECLIZINE HYDROCHLORIDE
     Indication: OFF LABEL USE
  3. ZOFRAN [Concomitant]
     Active Substance: ONDANSETRON HYDROCHLORIDE
     Indication: PRODUCT USED FOR UNKNOWN INDICATION
     Dosage: 1 DF, UNK
     Route: 065
  4. TRANSDERM SCOP [Suspect]
     Active Substance: SCOPOLAMINE
     Indication: DIZZINESS
     Dosage: UNK
     Route: 065
     Dates: start: 2009
  5. MECLIZINE [Suspect]
     Active Substance: MECLIZINE\MECLIZINE HYDROCHLORIDE
     Indication: DIZZINESS
     Dosage: UNK
     Route: 065
  6. ZOFRAN [Concomitant]
     Active Substance: ONDANSETRON HYDROCHLORIDE
     Dosage: 25 MG, TID
     Route: 065
     Dates: start: 20141009, end: 20141011

REACTIONS (4)
  - Dizziness [Recovered/Resolved]
  - Drug dependence [Recovered/Resolved]
  - Drug ineffective for unapproved indication [Unknown]
  - Drug withdrawal syndrome [Recovered/Resolved]

NARRATIVE: CASE EVENT DATE: 2009
